FAERS Safety Report 4603302-9 (Version None)
Quarter: 2005Q1

REPORT INFORMATION
  Report Type: 
  Country: None (occurrence: None)
  Receive Date: 20050307
  Receipt Date: 20050224
  Transmission Date: 20050727
  Serious: Yes (Life-Threatening, Hospitalization)
  Sender: FDA-Public Use
  Company Number: 200510472GDS

PATIENT
  Age: 87 Year
  Sex: Female

DRUGS (2)
  1. ADIRO 300 (ACETYLSALICYLIC ACID) [Suspect]
     Dosage: 300 MG, QD, ORAL
     Route: 048
     Dates: end: 20040101
  2. SINTROM [Suspect]
     Dosage: 6 MG, QW, ORAL
     Route: 048
     Dates: start: 20040512, end: 20040528

REACTIONS (2)
  - FALL [None]
  - HAEMATOMA [None]
